FAERS Safety Report 7391635-5 (Version None)
Quarter: 2011Q2

REPORT INFORMATION
  Report Type: 
  Country: None (occurrence: None)
  Receive Date: 20110404
  Receipt Date: 20110325
  Transmission Date: 20111010
  Serious: Yes (Hospitalization, Other)
  Sender: FDA-Public Use
  Company Number: US-RB-023963-11

PATIENT
  Sex: Female
  Weight: 63.5 kg

DRUGS (2)
  1. GUAIFENESIN [Suspect]
     Indication: NASOPHARYNGITIS
  2. MUCINEX [Suspect]
     Indication: NASOPHARYNGITIS

REACTIONS (4)
  - HEAD INJURY [None]
  - CARDIAC DISORDER [None]
  - DIZZINESS [None]
  - SYNCOPE [None]
